FAERS Safety Report 23767095 (Version 1)
Quarter: 2024Q2

REPORT INFORMATION
  Report Type: Spontaneous
  Country: CN (occurrence: CN)
  Receive Date: 20240422
  Receipt Date: 20240422
  Transmission Date: 20240715
  Serious: Yes (Hospitalization)
  Sender: FDA-Public Use
  Company Number: CN-002147023-NVSC2024CN083345

PATIENT
  Age: 83 Year
  Sex: Female
  Weight: 62 kg

DRUGS (1)
  1. SACUBITRIL\VALSARTAN [Suspect]
     Active Substance: SACUBITRIL\VALSARTAN
     Indication: Blood pressure abnormal
     Dosage: 100 MG, BID
     Route: 048
     Dates: start: 20240408, end: 20240409

REACTIONS (2)
  - Cough [Recovered/Resolved]
  - Inappropriate schedule of product administration [Unknown]

NARRATIVE: CASE EVENT DATE: 20240408
